FAERS Safety Report 4646650-9 (Version None)
Quarter: 2005Q2

REPORT INFORMATION
  Report Type: 
  Country: None (occurrence: None)
  Receive Date: 20050427
  Receipt Date: 20050422
  Transmission Date: 20051028
  Serious: Yes (Other)
  Sender: FDA-Public Use
  Company Number: PHRM2005FR01362

PATIENT
  Age: 45 Year
  Sex: Female

DRUGS (2)
  1. TEGRETOL [Suspect]
     Indication: BIPOLAR DISORDER
     Dosage: 400 MG, QD
     Route: 048
     Dates: start: 19970101
  2. HALDOL [Suspect]
     Route: 048

REACTIONS (1)
  - MACULAR DEGENERATION [None]
